FAERS Safety Report 7285670-5 (Version None)
Quarter: 2011Q1

REPORT INFORMATION
  Report Type: 
  Country: None (occurrence: None)
  Receive Date: 20110210
  Receipt Date: 20110202
  Transmission Date: 20110831
  Serious: Yes (Hospitalization)
  Sender: FDA-Public Use
  Company Number: B0686543A

PATIENT
  Sex: Male
  Weight: 98.7 kg

DRUGS (16)
  1. OMEPRAZOLE [Concomitant]
     Indication: PROPHYLAXIS
     Dosage: 20MG PER DAY
     Dates: start: 20100923
  2. ACETAMINOPHEN [Concomitant]
     Indication: PAIN
     Route: 048
  3. METFORMIN [Concomitant]
     Indication: BLOOD GLUCOSE ABNORMAL
     Dosage: 1000MG TWICE PER DAY
     Route: 048
     Dates: start: 20090812
  4. SIMVASTATIN [Concomitant]
     Indication: LIPIDS
     Dosage: 10MG PER DAY
     Route: 048
     Dates: start: 20091208
  5. TROMBYL [Concomitant]
     Indication: THROMBOSIS PROPHYLAXIS
     Dosage: 75MG PER DAY
     Route: 048
     Dates: start: 20100923
  6. ALLOPURINOL [Concomitant]
     Indication: BLOOD URIC ACID
     Dosage: 300MG PER DAY
     Route: 048
     Dates: start: 20100623
  7. ONDANSERTRON HCL [Concomitant]
     Indication: NAUSEA
     Route: 048
     Dates: start: 20100623
  8. DELTISON [Suspect]
     Indication: MULTIPLE MYELOMA
     Route: 048
     Dates: start: 20100623
  9. DIGOXIN [Concomitant]
     Indication: CARDIAC DISORDER
     Dosage: .13MG PER DAY
     Route: 048
     Dates: start: 20070206
  10. VENLAFAXINE [Concomitant]
     Indication: DEPRESSION
     Dosage: 150MG PER DAY
     Route: 048
  11. MORFIN [Concomitant]
     Indication: PAIN
     Route: 048
     Dates: start: 20100812
  12. LAXOBERAL [Concomitant]
     Indication: GASTRIC HYPOMOTILITY
     Route: 048
     Dates: start: 20100812
  13. ALKERAN [Suspect]
     Indication: MULTIPLE MYELOMA
     Route: 048
     Dates: start: 20100623
  14. LACTULOSE [Concomitant]
     Indication: CONSTIPATION PROPHYLAXIS
     Dosage: 20ML PER DAY
     Route: 048
     Dates: start: 20100623
  15. LINATIL [Concomitant]
     Indication: HYPERTENSION
     Dosage: 20MG TWICE PER DAY
     Route: 048
  16. DOLCONTIN [Concomitant]
     Indication: PAIN
     Route: 048
     Dates: start: 20100812

REACTIONS (3)
  - STAPHYLOCOCCAL SEPSIS [None]
  - PYREXIA [None]
  - C-REACTIVE PROTEIN INCREASED [None]
